FAERS Safety Report 16736567 (Version 2)
Quarter: 2021Q2

REPORT INFORMATION
  Report Type: Spontaneous
  Country: AU (occurrence: AU)
  Receive Date: 20190823
  Receipt Date: 20210608
  Transmission Date: 20210716
  Serious: Yes (Other)
  Sender: FDA-Public Use
  Company Number: AU-JNJFOC-20190822311

PATIENT

DRUGS (1)
  1. RISPERDAL [Suspect]
     Active Substance: RISPERIDONE
     Indication: PRODUCT USED FOR UNKNOWN INDICATION
     Route: 065

REACTIONS (6)
  - Biliary tract operation [Unknown]
  - Thrombosis [Unknown]
  - Abnormal weight gain [Unknown]
  - Lacrimal disorder [Unknown]
  - Blood glucose increased [Unknown]
  - Flatulence [Unknown]
